FAERS Safety Report 8178825-9 (Version None)
Quarter: 2012Q1

REPORT INFORMATION
  Report Type: 
  Country: None (occurrence: None)
  Receive Date: 20120301
  Receipt Date: 20120213
  Transmission Date: 20120608
  Serious: Yes (Hospitalization)
  Sender: FDA-Public Use
  Company Number: AR-TEVA-292062ISR

PATIENT
  Sex: Female

DRUGS (2)
  1. FILARTROS [Suspect]
     Indication: RHEUMATOID ARTHRITIS
     Dosage: 20 MILLIGRAM;
     Route: 048
     Dates: start: 20110201, end: 20110706
  2. ENBREL [Concomitant]
     Dosage: 50 MILLIGRAM; WEEKLY
     Route: 058
     Dates: start: 20101101, end: 20110706

REACTIONS (5)
  - NORMAL NEWBORN [None]
  - PREGNANCY [None]
  - ESCHERICHIA SEPSIS [None]
  - ECLAMPSIA [None]
  - MATERNAL EXPOSURE DURING PREGNANCY [None]
